FAERS Safety Report 8463055-3 (Version None)
Quarter: 2012Q2

REPORT INFORMATION
  Report Type: 
  Country: None (occurrence: None)
  Receive Date: 20120323
  Receipt Date: 20110613
  Transmission Date: 20120825
  Serious: Yes (Hospitalization)
  Sender: FDA-Public Use
  Company Number: 163-21880-11061834

PATIENT
  Age: 73 Year
  Sex: Female

DRUGS (9)
  1. EPOGEN [Concomitant]
  2. NORTRIPTYLINE HYDROCHLORIDE [Concomitant]
  3. GLIPIZIDE [Concomitant]
  4. METFORMIN HCL [Concomitant]
  5. LISINOPRIL [Concomitant]
  6. FLONASE [Concomitant]
  7. REVLIMID [Suspect]
     Indication: MULTIPLE MYELOMA
     Dosage: 10 MG, 1 IN 1 D, PO
     Route: 048
     Dates: start: 20110430, end: 20110508
  8. LOVASTATIN [Concomitant]
  9. OMEPRAZOLE [Concomitant]

REACTIONS (1)
  - RASH VESICULAR [None]
